FAERS Safety Report 7653641-2 (Version None)
Quarter: 2011Q3

REPORT INFORMATION
  Report Type: 
  Country: None (occurrence: None)
  Receive Date: 20110803
  Receipt Date: 20110803
  Transmission Date: 20111222
  Serious: Yes (Hospitalization)
  Sender: FDA-Public Use
  Company Number: None

PATIENT
  Age: 53 Year
  Sex: Male
  Weight: 96.161 kg

DRUGS (1)
  1. CIALIS [Suspect]
     Indication: DRUG THERAPY
     Dosage: 1/3 TAB THREE DIFFERENT TIMES
     Route: 048
     Dates: start: 20110728, end: 20110731

REACTIONS (7)
  - GAIT DISTURBANCE [None]
  - BACK PAIN [None]
  - MUSCULOSKELETAL PAIN [None]
  - MYALGIA [None]
  - WRONG TECHNIQUE IN DRUG USAGE PROCESS [None]
  - INTERVERTEBRAL DISC DISPLACEMENT [None]
  - PAIN [None]
